FAERS Safety Report 8003388-8 (Version None)
Quarter: 2011Q4

REPORT INFORMATION
  Report Type: 
  Country: None (occurrence: None)
  Receive Date: 20111222
  Receipt Date: 20111203
  Transmission Date: 20120403
  Serious: Yes (Hospitalization)
  Sender: FDA-Public Use
  Company Number: DE-PFIZER INC-2011290393

PATIENT
  Age: 49 Year
  Sex: Female

DRUGS (9)
  1. MIRTAZAPINE [Suspect]
     Dosage: 30 MG, UNK
     Route: 048
     Dates: start: 20101111, end: 20101118
  2. PANTOPRAZOLE SODIUM [Concomitant]
     Dosage: 20 MG, UNK
     Route: 048
     Dates: start: 20101130
  3. MIRTAZAPINE [Suspect]
     Dosage: 15 MG, UNK
     Route: 048
     Dates: end: 20101110
  4. RAMIPRIL [Suspect]
     Dosage: 2.5 MG, UNK
     Route: 048
     Dates: start: 20101206, end: 20101210
  5. MIRTAZAPINE [Suspect]
     Dosage: 45 MG, UNK
     Route: 048
     Dates: start: 20101119, end: 20101206
  6. SEROQUEL [Concomitant]
     Dosage: 150 MG, UNK
     Route: 048
     Dates: start: 20101126, end: 20101209
  7. SEROQUEL [Concomitant]
     Dosage: 175 MG, UNK
     Route: 048
     Dates: start: 20101210
  8. MIRTAZAPINE [Suspect]
     Dosage: 15 MG, UNK
     Route: 048
     Dates: start: 20101207, end: 20101208
  9. SEROQUEL [Concomitant]
     Dosage: 100 MG, UNK
     Route: 048
     Dates: end: 20101125

REACTIONS (5)
  - PALPITATIONS [None]
  - RESTLESSNESS [None]
  - PARAESTHESIA [None]
  - PAIN IN EXTREMITY [None]
  - OEDEMA [None]
